FAERS Safety Report 6068397-7 (Version None)
Quarter: 2009Q1

REPORT INFORMATION
  Report Type: 
  Country: None (occurrence: None)
  Receive Date: 20090206
  Receipt Date: 20090130
  Transmission Date: 20090719
  Serious: Yes (Death)
  Sender: FDA-Public Use
  Company Number: CH-TEVA-181205ISR

PATIENT
  Age: 27 Year
  Sex: Male

DRUGS (4)
  1. CITALOPRAM HYDROBROMIDE [Suspect]
     Indication: DEPRESSION
     Route: 048
     Dates: start: 20070601
  2. OLANZAPINE [Suspect]
     Indication: SCHIZOPHRENIA
     Route: 048
     Dates: start: 20030301
  3. LORAZEPAM [Concomitant]
     Route: 048
  4. ZOLPIDEM [Concomitant]
     Route: 048

REACTIONS (5)
  - BLOOD ELECTROLYTES ABNORMAL [None]
  - DRUG HALF-LIFE REDUCED [None]
  - HEAT STROKE [None]
  - PANCREATITIS HAEMORRHAGIC [None]
  - SUDDEN DEATH [None]
